FAERS Safety Report 4814503-9 (Version None)
Quarter: 2005Q4

REPORT INFORMATION
  Report Type: 
  Country: None (occurrence: None)
  Receive Date: 20051028
  Receipt Date: 20050729
  Transmission Date: 20060501
  Serious: Yes (Hospitalization)
  Sender: FDA-Public Use
  Company Number: US-MERCK-0508USA00334

PATIENT
  Age: 66 Year
  Sex: Female
  Weight: 89 kg

DRUGS (7)
  1. VIOXX [Suspect]
     Indication: RHEUMATOID ARTHRITIS
     Route: 048
     Dates: start: 19990101, end: 20040901
  2. METHOTREXATE [Concomitant]
     Indication: RHEUMATOID ARTHRITIS
     Route: 051
  3. PREDNISONE [Concomitant]
     Indication: RHEUMATOID ARTHRITIS
     Route: 051
  4. PRAVACHOL [Concomitant]
     Indication: HYPERCHOLESTEROLAEMIA
     Route: 048
     Dates: start: 19910101, end: 20050101
  5. CORTISONE [Concomitant]
     Indication: RHEUMATOID ARTHRITIS
     Route: 051
  6. CALAN [Concomitant]
     Indication: HYPERTENSION
     Route: 048
     Dates: start: 19990101, end: 20050101
  7. ZESTORETIC [Concomitant]
     Indication: HYPERTENSION
     Route: 065
     Dates: start: 19910101, end: 20050101

REACTIONS (5)
  - CARDIAC MURMUR [None]
  - DYSPNOEA [None]
  - INFLUENZA [None]
  - MYOCARDIAL INFARCTION [None]
  - SURGERY [None]
